FAERS Safety Report 25601912 (Version 4)
Quarter: 2025Q3

REPORT INFORMATION
  Report Type: Spontaneous
  Country: US (occurrence: US)
  Receive Date: 20250724
  Receipt Date: 20250826
  Transmission Date: 20251020
  Serious: No
  Sender: PFIZER
  Company Number: US-PFIZER INC-PV202500088213

PATIENT
  Age: 87 Year
  Sex: Female

DRUGS (1)
  1. ESTRING [Suspect]
     Active Substance: ESTRADIOL
     Indication: Genitourinary syndrome of menopause

REACTIONS (1)
  - Therapeutic product effect decreased [Unknown]
